FAERS Safety Report 17992773 (Version 1)
Quarter: 2020Q3

REPORT INFORMATION
  Report Type: Spontaneous
  Country: US (occurrence: US)
  Receive Date: 20200707
  Receipt Date: 20200707
  Transmission Date: 20201103
  Serious: No
  Sender: FDA-Public Use
  Company Number: US-INCYTE CORPORATION-2020IN006068

PATIENT

DRUGS (3)
  1. JAKAFI [Suspect]
     Active Substance: RUXOLITINIB
     Indication: TONGUE NEOPLASM MALIGNANT STAGE UNSPECIFIED
  2. JAKAFI [Suspect]
     Active Substance: RUXOLITINIB
     Indication: AGRANULOCYTOSIS
     Dosage: 5 MILLIGRAM, BID
     Route: 048
     Dates: start: 20200113
  3. PROTONIX [Concomitant]
     Active Substance: PANTOPRAZOLE SODIUM
     Indication: PRODUCT USED FOR UNKNOWN INDICATION
     Route: 065

REACTIONS (4)
  - Off label use [Unknown]
  - Pica [Unknown]
  - Therapeutic response unexpected [Unknown]
  - Blood count abnormal [Unknown]

NARRATIVE: CASE EVENT DATE: 20200113
